FAERS Safety Report 10098933 (Version 1)
Quarter: 2014Q2

REPORT INFORMATION
  Report Type: Spontaneous
  Country: US (occurrence: None)
  Receive Date: 20140422
  Receipt Date: 20140422
  Transmission Date: 20141212
  Serious: Yes (Hospitalization, Other)
  Sender: FDA-Public Use
  Company Number: None

PATIENT
  Age: 89 Year
  Sex: Female
  Weight: 54.43 kg

DRUGS (9)
  1. AMIODARONE HCL [Suspect]
     Indication: ARRHYTHMIA
     Dosage: 1 TABLET DAILY
     Route: 048
     Dates: start: 20140120, end: 20140321
  2. ADVAIR [Concomitant]
  3. PRO-TIS [Concomitant]
  4. LOSAZAPAM [Concomitant]
  5. TRAVATAN [Concomitant]
  6. AREDS [Concomitant]
  7. SEANUBIUZ [Concomitant]
  8. MELATOUEM [Concomitant]
  9. VIT D-3-1000 IU [Concomitant]

REACTIONS (9)
  - Feeling abnormal [None]
  - Alopecia [None]
  - Fatigue [None]
  - Asthenia [None]
  - Hyperhidrosis [None]
  - Movement disorder [None]
  - Erythema [None]
  - Swelling [None]
  - Photosensitivity reaction [None]
